FAERS Safety Report 5738770-2 (Version None)
Quarter: 2008Q2

REPORT INFORMATION
  Report Type: 
  Country: None (occurrence: None)
  Receive Date: 20080515
  Receipt Date: 20080218
  Transmission Date: 20081010
  Serious: No
  Sender: FDA-Public Use
  Company Number: A0710243A

PATIENT
  Age: 69 Year
  Sex: Female

DRUGS (6)
  1. VERAMYST [Suspect]
     Indication: SINUSITIS
     Dosage: 2PUFF PER DAY
     Route: 045
     Dates: start: 20080128
  2. UNKNOWN MEDICATION [Concomitant]
  3. VERAPAMIL [Concomitant]
  4. DIGOXIN [Concomitant]
  5. LASIX [Concomitant]
  6. LISINOPRIL [Concomitant]

REACTIONS (2)
  - BLOOD GLUCOSE INCREASED [None]
  - HEADACHE [None]
